FAERS Safety Report 5327623-X (Version None)
Quarter: 2007Q2

REPORT INFORMATION
  Report Type: 
  Country: None (occurrence: None)
  Receive Date: 20070517
  Receipt Date: 20070510
  Transmission Date: 20071010
  Serious: Yes (Hospitalization, Disabling)
  Sender: FDA-Public Use
  Company Number: A0614582A

PATIENT
  Age: 17 Year
  Sex: Female

DRUGS (6)
  1. PAXIL [Suspect]
     Indication: ANXIETY
     Dosage: 30MG PER DAY
     Route: 048
     Dates: start: 20001201, end: 20020101
  2. PAXIL CR [Suspect]
     Indication: DEPRESSION
     Dosage: 12.5MG AT NIGHT
     Route: 048
     Dates: start: 20020509
  3. EXTRA STRENGTH TYLENOL [Suspect]
     Dosage: 15TAB SINGLE DOSE
     Route: 048
     Dates: start: 20010117, end: 20010117
  4. ATIVAN [Concomitant]
  5. SEROQUEL [Concomitant]
  6. DEPAKOTE [Concomitant]
     Dates: start: 20010901

REACTIONS (16)
  - ANXIETY [None]
  - APATHY [None]
  - ASTHENIA [None]
  - DEPRESSION [None]
  - DISTURBANCE IN ATTENTION [None]
  - DRUG INEFFECTIVE [None]
  - FEELING OF DESPAIR [None]
  - HALLUCINATION [None]
  - INSOMNIA [None]
  - ORAL INTAKE REDUCED [None]
  - PARANOIA [None]
  - POOR QUALITY SLEEP [None]
  - PSYCHOTIC DISORDER [None]
  - SUICIDAL IDEATION [None]
  - SUICIDE ATTEMPT [None]
  - WEIGHT DECREASED [None]
